FAERS Safety Report 14492834 (Version 1)
Quarter: 2018Q1

REPORT INFORMATION
  Report Type: Spontaneous
  Country: US (occurrence: US)
  Receive Date: 20180206
  Receipt Date: 20180206
  Transmission Date: 20180509
  Serious: No
  Sender: FDA-Public Use
  Company Number: US-JNJFOC-20171230258

PATIENT
  Sex: Female

DRUGS (9)
  1. ZYRTEC [Suspect]
     Active Substance: CETIRIZINE HYDROCHLORIDE
     Indication: LACRIMATION INCREASED
     Dosage: DAILY
     Route: 065
  2. RHINOCORT ALLERGY [Concomitant]
     Active Substance: BUDESONIDE
     Indication: SNEEZING
     Route: 065
  3. ZYRTEC [Suspect]
     Active Substance: CETIRIZINE HYDROCHLORIDE
     Indication: SNEEZING
     Dosage: DAILY
     Route: 065
  4. RHINOCORT ALLERGY [Concomitant]
     Active Substance: BUDESONIDE
     Indication: EYE PRURITUS
     Route: 065
  5. ZYRTEC [Suspect]
     Active Substance: CETIRIZINE HYDROCHLORIDE
     Indication: EYE PRURITUS
     Dosage: DAILY
     Route: 065
  6. RHINOCORT ALLERGY [Concomitant]
     Active Substance: BUDESONIDE
     Indication: RHINORRHOEA
     Route: 065
  7. RHINOCORT ALLERGY [Concomitant]
     Active Substance: BUDESONIDE
     Indication: LACRIMATION INCREASED
     Route: 065
  8. ZYRTEC [Suspect]
     Active Substance: CETIRIZINE HYDROCHLORIDE
     Indication: HYPERSENSITIVITY
     Dosage: DAILY
     Route: 065
  9. ZYRTEC [Suspect]
     Active Substance: CETIRIZINE HYDROCHLORIDE
     Indication: RHINORRHOEA
     Dosage: DAILY
     Route: 065

REACTIONS (1)
  - Drug ineffective [Unknown]
